FAERS Safety Report 18026652 (Version 3)
Quarter: 2020Q3

REPORT INFORMATION
  Report Type: Report from Study
  Country: None (occurrence: US)
  Receive Date: 20200716
  Receipt Date: 20200918
  Transmission Date: 20201103
  Serious: Yes (Other)
  Sender: FDA-Public Use
  Company Number: US-ABBVIE-20K-163-3420218-00

PATIENT
  Sex: Male
  Weight: 120.31 kg

DRUGS (4)
  1. MULTIVITAMINS [Concomitant]
     Active Substance: VITAMINS
     Indication: VITAMIN D DEFICIENCY
  2. HUMIRA [Suspect]
     Active Substance: ADALIMUMAB
     Indication: CROHN^S DISEASE
     Dosage: DAY 1
     Route: 058
     Dates: start: 20200221, end: 20200221
  3. HUMIRA [Suspect]
     Active Substance: ADALIMUMAB
     Dosage: DAY 15
     Route: 058
     Dates: start: 20200306, end: 20200306
  4. HUMIRA [Suspect]
     Active Substance: ADALIMUMAB
     Route: 058
     Dates: start: 20200320

REACTIONS (12)
  - Diarrhoea [Unknown]
  - Intestinal prolapse [Recovering/Resolving]
  - Fatigue [Recovering/Resolving]
  - Increased appetite [Unknown]
  - Hypersensitivity [Unknown]
  - Abdominal pain upper [Unknown]
  - Constipation [Unknown]
  - Headache [Unknown]
  - Fistula [Not Recovered/Not Resolved]
  - Adverse food reaction [Unknown]
  - Fear of disease [Unknown]
  - Depression [Unknown]

NARRATIVE: CASE EVENT DATE: 2020
